FAERS Safety Report 12725427 (Version 1)
Quarter: 2016Q3

REPORT INFORMATION
  Report Type: Spontaneous
  Country: US (occurrence: US)
  Receive Date: 20160908
  Receipt Date: 20160908
  Transmission Date: 20161109
  Serious: Yes (Death, Hospitalization, Other)
  Sender: FDA-Public Use
  Company Number: US-PFIZER INC-2016417498

PATIENT
  Age: 77 Year
  Sex: Male

DRUGS (4)
  1. CEFTAZIDIME. [Suspect]
     Active Substance: CEFTAZIDIME
     Indication: BACTERIAL INFECTION
  2. SULFAMETHOXAZOLE/TRIMETHOPRIM [Suspect]
     Active Substance: SULFAMETHOXAZOLE\TRIMETHOPRIM
     Indication: ACINETOBACTER INFECTION
     Dosage: UNK
  3. CEFTAZIDIME. [Suspect]
     Active Substance: CEFTAZIDIME
     Indication: ACINETOBACTER INFECTION
     Dosage: UNK
  4. SULFAMETHOXAZOLE/TRIMETHOPRIM [Suspect]
     Active Substance: SULFAMETHOXAZOLE\TRIMETHOPRIM
     Indication: BACTERIAL INFECTION

REACTIONS (12)
  - Acinetobacter test positive [None]
  - Weaning failure [None]
  - Stenotrophomonas test positive [None]
  - Respiratory failure [Unknown]
  - Drug ineffective [Unknown]
  - Cytomegalovirus infection [None]
  - Pulmonary embolism [Unknown]
  - Urinary tract infection bacterial [Unknown]
  - Haemoglobin decreased [None]
  - Diverticulum intestinal haemorrhagic [Fatal]
  - Acute kidney injury [Unknown]
  - Cardiac arrest [Fatal]
